FAERS Safety Report 10207645 (Version 1)
Quarter: 2014Q2

REPORT INFORMATION
  Report Type: Spontaneous
  Country: GB (occurrence: GB)
  Receive Date: 20140530
  Receipt Date: 20140530
  Transmission Date: 20141212
  Serious: Yes (Other)
  Sender: FDA-Public Use
  Company Number: GB-TEVA-482968ISR

PATIENT
  Age: 23 Year
  Sex: Female
  Weight: 46 kg

DRUGS (5)
  1. MIRTAZAPINE [Suspect]
     Indication: JOINT HYPEREXTENSION
     Dosage: 30 MILLIGRAM DAILY;
     Route: 048
     Dates: start: 20111028, end: 20140508
  2. NORTRIPTYLINE [Suspect]
     Indication: POOR QUALITY SLEEP
     Dosage: 30 MILLIGRAM DAILY; AT NIGHT.
     Route: 048
     Dates: start: 20121004
  3. PREGABALIN [Suspect]
     Indication: JOINT HYPEREXTENSION
     Dosage: 100 MILLIGRAM DAILY;
     Route: 048
     Dates: start: 20111104, end: 20140508
  4. DICLOFENAC [Concomitant]
  5. PARACETAMOL [Concomitant]

REACTIONS (1)
  - Abortion spontaneous [Unknown]
